FAERS Safety Report 5824073-4 (Version None)
Quarter: 2008Q3

REPORT INFORMATION
  Report Type: 
  Country: None (occurrence: None)
  Receive Date: 20080728
  Receipt Date: 20080725
  Transmission Date: 20090109
  Serious: Yes (Hospitalization)
  Sender: FDA-Public Use
  Company Number: IT-BRISTOL-MYERS SQUIBB COMPANY-14268817

PATIENT
  Age: 41 Year
  Sex: Female

DRUGS (6)
  1. COUMADIN [Suspect]
     Indication: PULMONARY EMBOLISM
     Dosage: INTERRUPTED ON 11JUL08
     Route: 048
     Dates: start: 20080615
  2. MEGACE [Suspect]
     Indication: FIBROMA
     Dates: end: 20080714
  3. DELTACORTENE [Concomitant]
  4. PREDNISONE TAB [Concomitant]
     Dosage: 1 DOSAGE FORM=25(UNITS NOT SPECIFIED)
     Route: 048
  5. FOLIC ACID [Concomitant]
  6. LEUPROLIDE ACETATE [Concomitant]
     Dosage: 1 DOSAGEFORM = 1 VIAL LEUPRORELIN ACETATE 3,75
     Route: 030

REACTIONS (2)
  - ERYTHEMA [None]
  - TOXIC SKIN ERUPTION [None]
